FAERS Safety Report 22257221 (Version 1)
Quarter: 2023Q2

REPORT INFORMATION
  Report Type: Spontaneous
  Country: US (occurrence: US)
  Receive Date: 20230427
  Receipt Date: 20230427
  Transmission Date: 20230722
  Serious: Yes (Death, Other)
  Sender: FDA-Public Use
  Company Number: US-SLATE RUN PHARMACEUTICALS-23US001562

PATIENT

DRUGS (1)
  1. DOBUTAMINE [Suspect]
     Active Substance: DOBUTAMINE HYDROCHLORIDE
     Indication: Ventricular assist device insertion
     Dosage: UNK
     Route: 042

REACTIONS (5)
  - Vasoplegia syndrome [Fatal]
  - Shock [Fatal]
  - Hypersensitivity myocarditis [Fatal]
  - Cardiogenic shock [Unknown]
  - Ventricular tachycardia [Unknown]
